FAERS Safety Report 15292503 (Version 2)
Quarter: 2018Q4

REPORT INFORMATION
  Report Type: Spontaneous
  Country: DE (occurrence: DE)
  Receive Date: 20180818
  Receipt Date: 20181008
  Transmission Date: 20190204
  Serious: Yes (Death)
  Sender: FDA-Public Use
  Company Number: DE-ROCHE-2123106

PATIENT
  Age: 53 Year
  Sex: Female
  Weight: 50 kg

DRUGS (13)
  1. ROACTEMRA [Suspect]
     Active Substance: TOCILIZUMAB
     Route: 042
     Dates: start: 20170110
  2. ROACTEMRA [Suspect]
     Active Substance: TOCILIZUMAB
     Route: 042
     Dates: start: 20170208
  3. ROACTEMRA [Suspect]
     Active Substance: TOCILIZUMAB
     Indication: RHEUMATOID ARTHRITIS
     Dosage: =400 MG
     Route: 042
     Dates: start: 20130317, end: 20170308
  4. HYDROCHLOROTHIAZIDE. [Concomitant]
     Active Substance: HYDROCHLOROTHIAZIDE
     Route: 048
  5. ROACTEMRA [Suspect]
     Active Substance: TOCILIZUMAB
     Route: 042
     Dates: start: 20161214
  6. RAMIPRIL. [Concomitant]
     Active Substance: RAMIPRIL
     Route: 048
  7. METOPROLOL. [Concomitant]
     Active Substance: METOPROLOL
     Route: 048
  8. RIFAMPICIN [Concomitant]
     Active Substance: RIFAMPIN
  9. METHYLPREDNISOLON [Concomitant]
     Active Substance: METHYLPREDNISOLONE
     Indication: RHEUMATOID ARTHRITIS
     Route: 048
  10. HEPARIN [Concomitant]
     Active Substance: HEPARIN SODIUM
     Route: 058
  11. TAZOBACTAM [Concomitant]
     Active Substance: TAZOBACTAM
  12. PANTOZOL [Concomitant]
     Active Substance: PANTOPRAZOLE SODIUM
     Route: 048
  13. PIPERACILLIN. [Concomitant]
     Active Substance: PIPERACILLIN SODIUM

REACTIONS (9)
  - Hypoalbuminaemia [Fatal]
  - Eosinophilia [Fatal]
  - Acute kidney injury [Fatal]
  - Sepsis [Fatal]
  - Pneumonia [Fatal]
  - Splenic infarction [Fatal]
  - Arthritis bacterial [Fatal]
  - Hyperkalaemia [Fatal]
  - Iron deficiency anaemia [Fatal]

NARRATIVE: CASE EVENT DATE: 20170506
